FAERS Safety Report 5726813-1 (Version None)
Quarter: 2008Q2

REPORT INFORMATION
  Report Type: 
  Country: None (occurrence: None)
  Receive Date: 20080502
  Receipt Date: 20080423
  Transmission Date: 20081010
  Serious: Yes (Hospitalization)
  Sender: FDA-Public Use
  Company Number: JP-PFIZER INC-2008033949

PATIENT
  Age: 89 Year
  Sex: Female

DRUGS (12)
  1. DETRUSITOL LA [Suspect]
     Dosage: DAILY DOSE:4MG
     Route: 048
     Dates: start: 20080402, end: 20080412
  2. BLADDERON [Suspect]
     Route: 048
  3. BUP-4 [Suspect]
     Dosage: DAILY DOSE:20MG
     Route: 048
  4. ALL OTHER THERAPEUTIC PRODUCTS [Concomitant]
     Route: 048
  5. NEUROTROPIN [Concomitant]
  6. GASMOTIN [Concomitant]
  7. RISEDRONATE SODIUM HYDRATE [Concomitant]
  8. LAFUTIDINE [Concomitant]
  9. VALSARTAN [Concomitant]
  10. CONIEL [Concomitant]
  11. ASPIRIN [Concomitant]
  12. MAGNESIUM OXIDE [Concomitant]

REACTIONS (1)
  - INTESTINAL OBSTRUCTION [None]
